FAERS Safety Report 4375813-5 (Version None)
Quarter: 2004Q2

REPORT INFORMATION
  Report Type: 
  Country: None (occurrence: None)
  Receive Date: 20040607
  Receipt Date: 20040521
  Transmission Date: 20050107
  Serious: Yes (Other)
  Sender: FDA-Public Use
  Company Number: 2004215210GB

PATIENT
  Age: 73 Year
  Sex: Male

DRUGS (8)
  1. ZYVOX [Suspect]
     Indication: STAPHYLOCOCCAL INFECTION
     Dosage: 600 MG, BID, ORAL
     Route: 048
     Dates: start: 20040427
  2. WARFARIN SODIUM [Concomitant]
  3. DIGOXIN [Concomitant]
  4. AMIODARONE HCL [Concomitant]
  5. BUMETANIDE [Concomitant]
  6. SPIRONOLACTONE [Concomitant]
  7. ATORVASTATIN (ATORVASTATIN) [Concomitant]
  8. GABAPENTIN [Concomitant]

REACTIONS (2)
  - MOUTH ULCERATION [None]
  - MYALGIA [None]
